FAERS Safety Report 10022407 (Version 7)
Quarter: 2015Q2

REPORT INFORMATION
  Report Type: Spontaneous
  Country: US (occurrence: US)
  Receive Date: 20140319
  Receipt Date: 20150630
  Transmission Date: 20150821
  Serious: Yes (Hospitalization, Disabling, Other)
  Sender: FDA-Public Use
  Company Number: US-009507513-1403USA005959

PATIENT
  Sex: Female
  Weight: 59.1 kg

DRUGS (6)
  1. ALENDRONATE SODIUM. [Suspect]
     Active Substance: ALENDRONATE SODIUM
     Indication: OSTEOPENIA
     Dosage: 70 MG, UNK
     Route: 048
     Dates: start: 20080722, end: 201101
  2. VITAMIN D [Concomitant]
     Active Substance: CHOLECALCIFEROL
     Dosage: 1000 MG, QD
     Dates: start: 2001
  3. CALCIUM (UNSPECIFIED) [Concomitant]
     Active Substance: CALCIUM
     Dosage: 1200 IU, QD
     Route: 048
     Dates: start: 2001
  4. VITAMIN D [Concomitant]
     Active Substance: CHOLECALCIFEROL
     Dosage: 2000 MG, QD
     Route: 048
     Dates: start: 2001
  5. FOSAMAX [Suspect]
     Active Substance: ALENDRONATE SODIUM
     Indication: OSTEOPOROSIS
     Dosage: 70 MG, QW
     Route: 048
     Dates: start: 200112, end: 20110120
  6. VITAMINS (UNSPECIFIED) [Concomitant]
     Active Substance: VITAMINS
     Dosage: 1 EVERY DAY
     Route: 048
     Dates: start: 2001

REACTIONS (20)
  - Sleep apnoea syndrome [Unknown]
  - Packed red blood cell transfusion [Unknown]
  - Femur fracture [Recovering/Resolving]
  - Chronic obstructive pulmonary disease [Not Recovered/Not Resolved]
  - Fall [Unknown]
  - Open reduction of fracture [Unknown]
  - Fall [Unknown]
  - Tooth disorder [Unknown]
  - Limb asymmetry [Unknown]
  - Bone callus excessive [Unknown]
  - Irritable bowel syndrome [Unknown]
  - Spinal column stenosis [Unknown]
  - Nerve compression [Unknown]
  - Arthralgia [Unknown]
  - Femur fracture [Recovering/Resolving]
  - Tooth fracture [Unknown]
  - Tooth extraction [Unknown]
  - Gastrooesophageal reflux disease [Unknown]
  - Open reduction of fracture [Unknown]
  - Arthritis [Unknown]

NARRATIVE: CASE EVENT DATE: 2003
